FAERS Safety Report 7091675-X (Version None)
Quarter: 2010Q4

REPORT INFORMATION
  Report Type: 
  Country: None (occurrence: None)
  Receive Date: 20101109
  Receipt Date: 20090625
  Transmission Date: 20110411
  Serious: No
  Sender: FDA-Public Use
  Company Number: US-KINGPHARMUSA00001-K200900752

PATIENT
  Sex: Female
  Weight: 77.098 kg

DRUGS (4)
  1. FLECTOR [Suspect]
     Indication: PAIN IN EXTREMITY
     Dosage: 1 PATCH, BID
     Route: 061
     Dates: start: 20090201, end: 20090530
  2. FLECTOR [Suspect]
     Indication: ARTHRALGIA
  3. VOLTAREN [Suspect]
     Indication: PAIN IN EXTREMITY
     Dosage: UNK
     Route: 061
     Dates: start: 20090101
  4. VOLTAREN [Suspect]
     Indication: ARTHRALGIA

REACTIONS (10)
  - ABDOMINAL DISTENSION [None]
  - ABDOMINAL PAIN [None]
  - ANXIETY [None]
  - APPLICATION SITE RASH [None]
  - ASTHENIA [None]
  - DISORIENTATION [None]
  - DIZZINESS [None]
  - GASTRITIS [None]
  - HUNGER [None]
  - MALAISE [None]
